FAERS Safety Report 11230588 (Version 1)
Quarter: 2015Q2

REPORT INFORMATION
  Report Type: Spontaneous
  Country: US (occurrence: None)
  Receive Date: 20150630
  Receipt Date: 20150630
  Transmission Date: 20150821
  Serious: No
  Sender: FDA-Public Use
  Company Number: None

PATIENT
  Age: 44 Year
  Sex: Female
  Weight: 108.86 kg

DRUGS (18)
  1. MULTIVITAMIN [Concomitant]
     Active Substance: VITAMINS
  2. ONDANSETRON [Concomitant]
     Active Substance: ONDANSETRON
  3. CITALOPRAM LIQUID [Concomitant]
  4. ZOMIG [Concomitant]
     Active Substance: ZOLMITRIPTAN
  5. TYLENOL [Concomitant]
     Active Substance: ACETAMINOPHEN
  6. BENADRYL [Concomitant]
     Active Substance: DIPHENHYDRAMINE HYDROCHLORIDE
  7. DOXYCYCLINE. [Concomitant]
     Active Substance: DOXYCYCLINE
  8. TRAMADOL [Concomitant]
     Active Substance: TRAMADOL
  9. LEVOTHYROXINE [Concomitant]
     Active Substance: LEVOTHYROXINE
  10. CALCIUM [Concomitant]
     Active Substance: CALCIUM
  11. ABILIFY [Suspect]
     Active Substance: ARIPIPRAZOLE
     Indication: BIPOLAR DISORDER
     Route: 048
  12. MAGNESIUM OXIDE. [Concomitant]
     Active Substance: MAGNESIUM OXIDE
  13. VITAMIN D [Concomitant]
     Active Substance: CHOLECALCIFEROL
  14. IRON [Concomitant]
     Active Substance: IRON
  15. IBUPROFEN. [Concomitant]
     Active Substance: IBUPROFEN
  16. MONTELUKAST [Concomitant]
     Active Substance: MONTELUKAST SODIUM
  17. VITAMIN B12 [Concomitant]
     Active Substance: CYANOCOBALAMIN
  18. ABILIFY DISCMELT [Suspect]
     Active Substance: ARIPIPRAZOLE

REACTIONS (2)
  - Vomiting [None]
  - Product use issue [None]

NARRATIVE: CASE EVENT DATE: 20150610
